FAERS Safety Report 13690350 (Version 2)
Quarter: 2017Q3

REPORT INFORMATION
  Report Type: Spontaneous
  Country: US (occurrence: US)
  Receive Date: 20170626
  Receipt Date: 20170811
  Transmission Date: 20171127
  Serious: Yes (Hospitalization)
  Sender: FDA-Public Use
  Company Number: US-JNJFOC-20170623142

PATIENT
  Sex: Female
  Weight: 48 kg

DRUGS (5)
  1. ASA [Concomitant]
     Active Substance: ASPIRIN
  2. IRON [Concomitant]
     Active Substance: IRON
  3. BIFIDOBACTERIUM LACTIS [Concomitant]
     Active Substance: BIFIDOBACTERIUM ANIMALIS LACTIS
  4. IMBRUVICA [Suspect]
     Active Substance: IBRUTINIB
     Indication: PRODUCT USED FOR UNKNOWN INDICATION
     Route: 048
     Dates: start: 20170427, end: 20170801
  5. QUINAPRIL. [Concomitant]
     Active Substance: QUINAPRIL

REACTIONS (3)
  - Post procedural infection [Recovering/Resolving]
  - Renal cyst [Unknown]
  - Clostridium difficile infection [Unknown]

NARRATIVE: CASE EVENT DATE: 2017
